FAERS Safety Report 9413028 (Version 1)
Quarter: 2013Q3

REPORT INFORMATION
  Report Type: Report from Study
  Country: DE (occurrence: DE)
  Receive Date: 20130722
  Receipt Date: 20130722
  Transmission Date: 20140515
  Serious: Yes (Other)
  Sender: FDA-Public Use
  Company Number: DE-ROCHE-769998

PATIENT
  Age: 47 Year
  Sex: Female
  Weight: 105 kg

DRUGS (8)
  1. PEG-INTERFERON ALFA 2A [Suspect]
     Indication: CHRONIC HEPATITIS C
     Route: 058
  2. RIBAVIRIN [Suspect]
     Indication: CHRONIC HEPATITIS C
     Route: 048
     Dates: start: 20101029, end: 20110308
  3. RIBAVIRIN [Suspect]
     Dosage: DOSAGE INCREASED
     Route: 048
  4. ROXITHROMYCIN [Suspect]
     Indication: PRODUCT USED FOR UNKNOWN INDICATION
     Dosage: GIVEN FOR 10 DAYS
     Route: 065
  5. LANTUS [Concomitant]
     Indication: DIABETES MELLITUS
     Route: 058
  6. XELEVIA [Concomitant]
     Indication: DIABETES MELLITUS
     Dosage: IN THE MORNING
     Route: 048
  7. METFORMIN [Concomitant]
     Indication: DIABETES MELLITUS
     Dosage: 1-0-1
     Route: 048
  8. BISOMERCK PLUS [Concomitant]
     Indication: HYPERTENSION
     Dosage: 1-1-0
     Route: 048

REACTIONS (2)
  - Hepatitis C RNA increased [Recovered/Resolved]
  - Infection [Unknown]
